FAERS Safety Report 9790932 (Version 2)
Quarter: 2013Q4

REPORT INFORMATION
  Report Type: Spontaneous
  Country: US (occurrence: US)
  Receive Date: 20131231
  Receipt Date: 20131231
  Transmission Date: 20140711
  Serious: No
  Sender: FDA-Public Use
  Company Number: US-PFIZER INC-2013342034

PATIENT
  Age: 64 Year
  Sex: Female

DRUGS (4)
  1. ENBREL [Suspect]
     Indication: RHEUMATOID ARTHRITIS
     Dosage: 50 MG, WEEKLY
     Route: 065
     Dates: start: 20130926, end: 2013
  2. ENBREL [Suspect]
     Dosage: 50 MG, WEEKLY
     Dates: start: 20131219
  3. CELEBREX [Suspect]
     Dosage: UNK
     Route: 065
  4. KAOPECTATE [Suspect]
     Indication: DIARRHOEA
     Dosage: UNK

REACTIONS (8)
  - Pruritus generalised [Recovered/Resolved]
  - Vomiting [Recovered/Resolved]
  - Diarrhoea [Recovered/Resolved]
  - Constipation [Recovered/Resolved]
  - Injection site erythema [Recovered/Resolved]
  - Injection site discolouration [Recovered/Resolved]
  - Injection site pruritus [Recovered/Resolved]
  - Injection site swelling [Recovered/Resolved]
